FAERS Safety Report 11050807 (Version 1)
Quarter: 2015Q2

REPORT INFORMATION
  Report Type: Spontaneous
  Country: US (occurrence: None)
  Receive Date: 20150420
  Receipt Date: 20150420
  Transmission Date: 20150821
  Serious: No
  Sender: FDA-Public Use
  Company Number: None

PATIENT

DRUGS (2)
  1. MAGNESIUM SULFATE INJECTION MAGNESIUM SULFATE [Suspect]
     Active Substance: MAGNESIUM SULFATE
     Dosage: STRENGTH: 1GM/2ML     DOSAGE FORM: INJECTABLE     ADM ROUTE: INJECTION
  2. HEPARIN [Suspect]
     Active Substance: HEPARIN SODIUM
     Dosage: STRENGTH: 5000 UNIT/ML   DOSAGE FORM: INJECTABLE     ADM ROUTE: INJECTION

REACTIONS (2)
  - Circumstance or information capable of leading to medication error [None]
  - Product label confusion [None]
